FAERS Safety Report 6229684-2 (Version None)
Quarter: 2009Q2

REPORT INFORMATION
  Report Type: 
  Country: None (occurrence: None)
  Receive Date: 20090615
  Receipt Date: 20090604
  Transmission Date: 20091009
  Serious: Yes (Other)
  Sender: FDA-Public Use
  Company Number: US-AMGEN-QUU350251

PATIENT
  Sex: Female
  Weight: 2.7 kg

DRUGS (2)
  1. ENBREL [Suspect]
     Indication: RHEUMATOID ARTHRITIS
     Route: 064
     Dates: start: 20061201
  2. VITAMIN TAB [Concomitant]
     Route: 064

REACTIONS (1)
  - PREMATURE BABY [None]
